FAERS Safety Report 5393815-7 (Version None)
Quarter: 2007Q3

REPORT INFORMATION
  Report Type: 
  Country: None (occurrence: None)
  Receive Date: 20070720
  Receipt Date: 20070720
  Transmission Date: 20080115
  Serious: Yes (Hospitalization)
  Sender: FDA-Public Use
  Company Number: None

PATIENT
  Sex: Male
  Weight: 64.4108 kg

DRUGS (2)
  1. GEMZAR [Suspect]
     Indication: PANCREATIC CARCINOMA
     Dosage: 1.76 GRAMS 1XWK X 3 WKS IV
     Route: 042
     Dates: start: 20070106
  2. LAPATINIB [Suspect]
     Indication: PANCREATIC CARCINOMA
     Dosage: DAILY PO
     Route: 048
     Dates: start: 20070706

REACTIONS (6)
  - ANAEMIA [None]
  - BACTERIAL INFECTION [None]
  - BLOOD CULTURE POSITIVE [None]
  - CHOLANGITIS [None]
  - SEPSIS [None]
  - STENT OCCLUSION [None]
